FAERS Safety Report 6716225-6 (Version None)
Quarter: 2010Q2

REPORT INFORMATION
  Report Type: 
  Country: None (occurrence: None)
  Receive Date: 20100507
  Receipt Date: 20100427
  Transmission Date: 20101027
  Serious: Yes (Other)
  Sender: FDA-Public Use
  Company Number: SK-PFIZER INC-2010050918

PATIENT
  Age: 71 Year
  Sex: Male

DRUGS (11)
  1. ATORVASTATIN CALCIUM [Interacting]
     Indication: LEUKOCYTOSIS
     Dosage: 20 MG, UNK
     Dates: start: 20070212
  2. CYCLOSPORINE [Interacting]
     Dosage: UNK
     Dates: start: 20060301, end: 20070315
  3. CLARITHROMYCIN [Interacting]
     Dosage: UNK
     Dates: start: 20070308
  4. CIPROFLOXACIN [Interacting]
     Indication: CHRONIC OBSTRUCTIVE PULMONARY DISEASE
     Dosage: UNK
     Dates: start: 20070308
  5. CIPROFLOXACIN [Interacting]
     Indication: LEUKOCYTOSIS
  6. CIPROFLOXACIN [Interacting]
     Indication: PYREXIA
  7. KETOKONAZOL [Interacting]
     Indication: CHRONIC OBSTRUCTIVE PULMONARY DISEASE
     Dosage: UNK
     Dates: start: 20070301
  8. KETOKONAZOL [Interacting]
     Indication: LEUKOCYTOSIS
  9. KETOKONAZOL [Interacting]
     Indication: PYREXIA
  10. FLUCONAZOLE [Suspect]
     Indication: LEUKOCYTOSIS
     Dosage: UNK
     Dates: start: 20070315
  11. CEFUROXIME [Suspect]
     Indication: LEUKOCYTOSIS
     Dosage: UNK
     Dates: start: 20070308

REACTIONS (2)
  - DRUG INTERACTION [None]
  - RENAL FAILURE ACUTE [None]
